FAERS Safety Report 8836573 (Version 1)
Quarter: 2012Q4

REPORT INFORMATION
  Report Type: Spontaneous
  Country: US (occurrence: None)
  Receive Date: 20121009
  Receipt Date: 20121009
  Transmission Date: 20130627
  Serious: Yes (Hospitalization)
  Sender: FDA-Public Use
  Company Number: 12AE010

PATIENT
  Age: 66 Year
  Sex: Female

DRUGS (1)
  1. ACETAMINOPHEN 500MG 917 [Suspect]
     Indication: CHRONIC PAIN
     Route: 048

REACTIONS (2)
  - Convulsion [None]
  - Amnesia [None]
